FAERS Safety Report 21012226 (Version 1)
Quarter: 2022Q3

REPORT INFORMATION
  Report Type: Spontaneous
  Country: DE (occurrence: DE)
  Receive Date: 20220627
  Receipt Date: 20220627
  Transmission Date: 20221027
  Serious: Yes (Other)
  Sender: FDA-Public Use
  Company Number: DE-NOVARTISPH-NVSC2022DE145364

PATIENT
  Age: 59 Year
  Sex: Female
  Weight: 80 kg

DRUGS (5)
  1. DEXAMETHASONE [Suspect]
     Active Substance: DEXAMETHASONE
     Indication: Plasma cell myeloma
     Dosage: 8 MG, (DEXAMETHASONE LAST APPLICATION WAS PRIOR EVENT ON 14 APR 2022 AND LAST DOSE PRIOR EVENT WAS 8
     Route: 065
     Dates: start: 20220407
  2. ELOTUZUMAB [Suspect]
     Active Substance: ELOTUZUMAB
     Indication: Plasma cell myeloma
     Dosage: 795 MG, (ELOTUZUMAB LAST APPLICATION WAS PRIOR EVENT ON 14 APR 2022 AND LAST DOSE PRIOR EVENT WAS 79
     Route: 065
     Dates: start: 20220407, end: 20220420
  3. POMALIDOMIDE [Suspect]
     Active Substance: POMALIDOMIDE
     Indication: Plasma cell myeloma
     Dosage: 4 MG, (POMALIDOMIDE LAST APPLICATION WAS PRIOR EVENT ON 19 APR 2022 AND LAST DOSE PRIOR EVENT WAS 4
     Route: 065
     Dates: start: 20220407, end: 20220427
  4. FILGRASTIM [Concomitant]
     Active Substance: FILGRASTIM
     Indication: Product used for unknown indication
     Dosage: 0.5 ML, QD
     Route: 058
     Dates: start: 20190723, end: 20190727
  5. FILGRASTIM [Concomitant]
     Active Substance: FILGRASTIM
     Dosage: 0.5 ML, QD
     Route: 058
     Dates: start: 20190813, end: 20190817

REACTIONS (5)
  - Leukopenia [Recovered/Resolved]
  - Neutropenia [Recovered/Resolved]
  - Stomatitis [Recovered/Resolved]
  - Asthenia [Recovered/Resolved]
  - Infection [Recovered/Resolved]

NARRATIVE: CASE EVENT DATE: 20220420
